FAERS Safety Report 14696262 (Version 1)
Quarter: 2018Q1

REPORT INFORMATION
  Report Type: Spontaneous
  Country: JP (occurrence: JP)
  Receive Date: 20180329
  Receipt Date: 20180329
  Transmission Date: 20180509
  Serious: Yes (Hospitalization, Other)
  Sender: FDA-Public Use
  Company Number: JP-VISTAPHARM, INC.-VER201803-000509

PATIENT
  Age: 55 Year
  Sex: Male

DRUGS (6)
  1. CYCLOSPORINE. [Suspect]
     Active Substance: CYCLOSPORINE
     Indication: IMMUNOSUPPRESSION
  2. PREDNISOLONE. [Suspect]
     Active Substance: PREDNISOLONE
     Indication: IMMUNOSUPPRESSION
  3. TOCILIZUMAB. [Suspect]
     Active Substance: TOCILIZUMAB
     Indication: CASTLEMAN^S DISEASE
  4. TOCILIZUMAB. [Suspect]
     Active Substance: TOCILIZUMAB
     Indication: IMMUNOSUPPRESSION
  5. PREDNISOLONE. [Suspect]
     Active Substance: PREDNISOLONE
     Indication: CASTLEMAN^S DISEASE
  6. CYCLOSPORINE. [Suspect]
     Active Substance: CYCLOSPORINE
     Indication: CASTLEMAN^S DISEASE

REACTIONS (3)
  - Cellulitis [Unknown]
  - Renal impairment [Unknown]
  - Disseminated cryptococcosis [Recovered/Resolved]
